FAERS Safety Report 14361267 (Version 2)
Quarter: 2018Q1

REPORT INFORMATION
  Report Type: Spontaneous
  Country: IT (occurrence: IT)
  Receive Date: 20180108
  Receipt Date: 20180305
  Transmission Date: 20180509
  Serious: Yes (Hospitalization)
  Sender: FDA-Public Use
  Company Number: IT-ROCHE-2048561

PATIENT
  Age: 63 Year
  Sex: Female

DRUGS (2)
  1. XELODA [Suspect]
     Active Substance: CAPECITABINE
     Indication: BREAST CANCER
     Route: 065
     Dates: start: 20170728
  2. TYVERB [Suspect]
     Active Substance: LAPATINIB
     Indication: BREAST CANCER
     Route: 065
     Dates: start: 20170728

REACTIONS (3)
  - Diarrhoea [Recovered/Resolved]
  - Injury [Recovered/Resolved]
  - Syncope [Recovered/Resolved]

NARRATIVE: CASE EVENT DATE: 20171123
